FAERS Safety Report 4299313-6 (Version None)
Quarter: 2004Q1

REPORT INFORMATION
  Report Type: 
  Country: None (occurrence: None)
  Receive Date: 20040217
  Receipt Date: 20030528
  Transmission Date: 20041129
  Serious: Yes (Hospitalization)
  Sender: FDA-Public Use
  Company Number: US030818

PATIENT
  Age: 47 Year
  Sex: Female

DRUGS (2)
  1. ETANERCEPT [Suspect]
     Indication: ANKYLOSING SPONDYLITIS
     Dosage: 25 MG, TWICE WEEKLY, SC
     Route: 058
     Dates: start: 20020911
  2. SULFASALAZINE [Suspect]

REACTIONS (2)
  - DEHYDRATION [None]
  - PANCREATITIS [None]
